FAERS Safety Report 6337660-4 (Version None)
Quarter: 2009Q3

REPORT INFORMATION
  Report Type: 
  Country: None (occurrence: None)
  Receive Date: 20090902
  Receipt Date: 20090803
  Transmission Date: 20100115
  Serious: No
  Sender: FDA-Public Use
  Company Number: US-BAYER-200913091BCC

PATIENT
  Age: 84 Year
  Sex: Female
  Weight: 54 kg

DRUGS (7)
  1. ALEVE (CAPLET) [Suspect]
     Indication: BACK PAIN
     Dosage: UNIT DOSE: 220 MG
     Route: 048
     Dates: start: 20090801
  2. ADVAIR HFA [Concomitant]
     Dosage: TOOK ADVAIR IN THE MORNIG
     Route: 065
  3. CALCIUM WITH D [Concomitant]
     Route: 065
  4. ASPIRIN [Concomitant]
     Route: 065
  5. ATACAND [Concomitant]
     Route: 065
  6. SPIRIVA [Concomitant]
     Route: 065
  7. ZARONTIN [Concomitant]
     Route: 065

REACTIONS (2)
  - BACK PAIN [None]
  - MUSCULOSKELETAL PAIN [None]
